FAERS Safety Report 25406549 (Version 5)
Quarter: 2025Q4

REPORT INFORMATION
  Report Type: Report from Study
  Country: US (occurrence: US)
  Receive Date: 20250606
  Receipt Date: 20251014
  Transmission Date: 20260117
  Serious: Yes (Hospitalization)
  Sender: MALLINCKRODT
  Company Number: US-MALLINCKRODT-MNK202503305

PATIENT
  Sex: Female

DRUGS (5)
  1. CORTICOTROPIN [Suspect]
     Active Substance: CORTICOTROPIN
     Indication: Dermatomyositis
     Dosage: 80 UNITS
     Route: 058
     Dates: start: 202411
  2. ACETAMINOPHEN\ASCORBIC ACID [Suspect]
     Active Substance: ACETAMINOPHEN\ASCORBIC ACID
     Indication: Product used for unknown indication
     Dosage: UNKNOWN
  3. PROLIA [Concomitant]
     Active Substance: DENOSUMAB
     Dosage: UNKNOWN
  4. METFORMIN [Concomitant]
     Active Substance: METFORMIN HYDROCHLORIDE
     Dosage: UNKNOWN
  5. PREDNISONE [Concomitant]
     Active Substance: PREDNISONE
     Dosage: UNKNOWN

REACTIONS (5)
  - Transient ischaemic attack [Recovered/Resolved]
  - Contusion [Unknown]
  - Myalgia [Unknown]
  - Muscular weakness [Unknown]
  - Contraindicated product administered [Unknown]
